FAERS Safety Report 24678789 (Version 1)
Quarter: 2024Q4

REPORT INFORMATION
  Report Type: Spontaneous
  Country: US (occurrence: US)
  Receive Date: 20241129
  Receipt Date: 20241129
  Transmission Date: 20250114
  Serious: Yes (Hospitalization, Other)
  Sender: AZURITY PHARMACEUTICALS
  Company Number: US-AZURITY PHARMACEUTICALS, INC.-AZR202411-001133

PATIENT
  Age: 62 Year
  Sex: Male

DRUGS (3)
  1. ERYTHROMYCIN [Interacting]
     Active Substance: ERYTHROMYCIN
     Indication: Osteomyelitis
     Dosage: 500 MILLIGRAM, FOUR TIMES DAILY
     Route: 065
  2. TACROLIMUS [Interacting]
     Active Substance: TACROLIMUS
     Indication: Product used for unknown indication
     Dosage: UNK
     Route: 065
  3. DOXYCYCLINE [Suspect]
     Active Substance: DOXYCYCLINE
     Indication: Osteomyelitis
     Dosage: 100 MILLIGRAM, TWO TIMES DAILY
     Route: 065

REACTIONS (4)
  - Acute kidney injury [Not Recovered/Not Resolved]
  - Hyperoxaluria [Not Recovered/Not Resolved]
  - Diarrhoea [Unknown]
  - Drug interaction [Unknown]
